FAERS Safety Report 9783339 (Version 2)
Quarter: 2014Q1

REPORT INFORMATION
  Report Type: Spontaneous
  Country: US (occurrence: None)
  Receive Date: 20131223
  Receipt Date: 20140304
  Transmission Date: 20141002
  Serious: Yes (Death)
  Sender: FDA-Public Use
  Company Number: SYM-2013-14194

PATIENT
  Age: 77 Year
  Sex: Male

DRUGS (2)
  1. XENAZINE [Suspect]
     Indication: DYSKINESIA
     Dosage: 1 IN 1 D
     Route: 048
     Dates: start: 20130912, end: 201311
  2. XENAZINE [Suspect]
     Indication: OFF LABEL USE
     Dosage: 1 IN 1 D
     Route: 048
     Dates: start: 20130912, end: 201311

REACTIONS (1)
  - Death [None]
